FAERS Safety Report 7250163-8 (Version None)
Quarter: 2011Q1

REPORT INFORMATION
  Report Type: 
  Country: None (occurrence: None)
  Receive Date: 20110128
  Receipt Date: 20110112
  Transmission Date: 20110831
  Serious: Yes (Death)
  Sender: FDA-Public Use
  Company Number: ZA-BAYER-2011-003368

PATIENT
  Age: 17 Year
  Sex: Female

DRUGS (1)
  1. YAZ [Suspect]

REACTIONS (3)
  - TACHYCARDIA [None]
  - MALAISE [None]
  - PULMONARY EMBOLISM [None]
